FAERS Safety Report 17931480 (Version 2)
Quarter: 2020Q3

REPORT INFORMATION
  Report Type: Spontaneous
  Country: US (occurrence: US)
  Receive Date: 20200624
  Receipt Date: 20200710
  Transmission Date: 20201103
  Serious: Yes (Other)
  Sender: FDA-Public Use
  Company Number: NVSC2020US173557

PATIENT

DRUGS (1)
  1. CANAKINUMAB. [Suspect]
     Active Substance: CANAKINUMAB
     Indication: STILL^S DISEASE
     Dosage: UNK
     Route: 065

REACTIONS (1)
  - Inflammatory bowel disease [Unknown]
